FAERS Safety Report 10057411 (Version 1)
Quarter: 2014Q2

REPORT INFORMATION
  Report Type: Spontaneous
  Country: IT (occurrence: IT)
  Receive Date: 20140403
  Receipt Date: 20140403
  Transmission Date: 20141212
  Serious: Yes (Hospitalization)
  Sender: FDA-Public Use
  Company Number: IT-TEVA-473142ISR

PATIENT
  Age: 69 Year
  Sex: Male
  Weight: 74 kg

DRUGS (3)
  1. RIBAVIRINA [Suspect]
     Indication: CHRONIC HEPATITIS C
     Dosage: 1000 MILLIGRAM DAILY;
     Route: 048
     Dates: start: 20130323, end: 20130621
  2. TELAPREVIR [Interacting]
     Indication: CHRONIC HEPATITIS C
     Dosage: 2.25 GRAM DAILY;
     Route: 048
     Dates: start: 20130323, end: 20130621
  3. INTERFERONE ALFA-2A PEGILATO [Interacting]
     Indication: CHRONIC HEPATITIS C
     Dosage: 180 MICROGRAM DAILY;
     Dates: start: 20130323, end: 20130621

REACTIONS (2)
  - Anaemia [Not Recovered/Not Resolved]
  - Drug interaction [Not Recovered/Not Resolved]
